FAERS Safety Report 11106468 (Version 1)
Quarter: 2015Q2

REPORT INFORMATION
  Report Type: Spontaneous
  Country: BE (occurrence: BE)
  Receive Date: 20150512
  Receipt Date: 20150512
  Transmission Date: 20150821
  Serious: Yes (Other)
  Sender: FDA-Public Use
  Company Number: BE-PFIZER INC-2015057823

PATIENT
  Age: 76 Year
  Sex: Female
  Weight: 59.5 kg

DRUGS (8)
  1. BURINEX [Concomitant]
     Active Substance: BUMETANIDE
     Dosage: 1/2 TABLET OF 1 MG, 2X/WEEK
  2. COMTAN [Concomitant]
     Active Substance: ENTACAPONE
     Dosage: 200 MG, 5X/DAY
  3. PROLOPA [Concomitant]
     Active Substance: BENSERAZIDE\LEVODOPA
     Dosage: 100 MG/25 MG, 4X/DAY
  4. DALACIN C [Suspect]
     Active Substance: CLINDAMYCIN PHOSPHATE
     Indication: BRONCHITIS
     Dosage: 300 MG, 4X/DAY
     Route: 048
     Dates: start: 20150126, end: 20150130
  5. MARCOUMAR [Concomitant]
     Active Substance: PHENPROCOUMON
     Dosage: 3 MG, 1X/DAY
  6. SELOZOK [Concomitant]
     Active Substance: METOPROLOL SUCCINATE
     Dosage: UNK
  7. AZILECT [Concomitant]
     Active Substance: RASAGILINE MESYLATE
     Dosage: 1 MG, 1X/DAY
  8. MICTONORM [Concomitant]
     Active Substance: PROPIVERINE HYDROCHLORIDE
     Dosage: 30 MG, 1X/DAY

REACTIONS (10)
  - Hair texture abnormal [Recovered/Resolved]
  - Blister [Not Recovered/Not Resolved]
  - Rash [Recovered/Resolved]
  - Oral pruritus [Not Recovered/Not Resolved]
  - Oral fungal infection [Not Recovered/Not Resolved]
  - Respiratory tract infection [Not Recovered/Not Resolved]
  - Rash papular [Recovered/Resolved]
  - Feeling abnormal [Recovered/Resolved]
  - Pruritus [Recovered/Resolved]
  - Burning sensation [Recovered/Resolved]

NARRATIVE: CASE EVENT DATE: 20150130
